FAERS Safety Report 20307261 (Version 2)
Quarter: 2022Q1

REPORT INFORMATION
  Report Type: Spontaneous
  Country: US (occurrence: US)
  Receive Date: 20220107
  Receipt Date: 20220112
  Transmission Date: 20220424
  Serious: Yes (Death, Other)
  Sender: FDA-Public Use
  Company Number: US-AMGEN-USASP2022000378

PATIENT

DRUGS (16)
  1. BLINATUMOMAB [Suspect]
     Active Substance: BLINATUMOMAB
     Indication: Acute lymphocytic leukaemia
     Dosage: UNK
     Route: 065
  2. INOTUZUMAB OZOGAMICIN [Concomitant]
     Active Substance: INOTUZUMAB OZOGAMICIN
     Dosage: UNK
  3. DAUNORUBICIN [Concomitant]
     Active Substance: DAUNORUBICIN
     Dosage: 60 MG/M2
     Route: 042
  4. VINCRISTINE [Concomitant]
     Active Substance: VINCRISTINE
     Dosage: 1.4 MG/M2
     Route: 042
  5. VINCRISTINE [Concomitant]
     Active Substance: VINCRISTINE
     Dosage: 1.4 MG/M2 (MAX 2 MG)
     Route: 042
  6. PEGASPARGASE [Concomitant]
     Active Substance: PEGASPARGASE
     Dosage: 2000 IU/M2
     Route: 042
  7. PEGASPARGASE [Concomitant]
     Active Substance: PEGASPARGASE
     Dosage: 2000 IU/M2
     Route: 042
  8. PREDNISONE [Concomitant]
     Active Substance: PREDNISONE
     Dosage: 60 MG/M2
     Route: 048
  9. PREDNISONE [Concomitant]
     Active Substance: PREDNISONE
     Dosage: 20 MG/M2
     Route: 048
  10. METHOTREXATE [Concomitant]
     Active Substance: METHOTREXATE
     Dosage: 12 MILLIGRAM (IT)
  11. METHOTREXATE [Concomitant]
     Active Substance: METHOTREXATE
     Dosage: 3 G/M2
     Route: 042
  12. CYCLOPHOSPHAMIDE [Concomitant]
     Active Substance: CYCLOPHOSPHAMIDE
     Dosage: 1 G/M2
     Route: 042
  13. CYTARABINE [Concomitant]
     Active Substance: CYTARABINE
     Dosage: 1 G/M2
  14. LEUCOVORIN [Concomitant]
     Active Substance: LEUCOVORIN
     Dosage: 50 MILLIGRAM, EVERY 8 HOUR
     Route: 042
  15. HYDROCORTISONE [Concomitant]
     Active Substance: HYDROCORTISONE
     Dosage: 25 MILLIGRAM IT
  16. MERCAPTOPURINE [Concomitant]
     Active Substance: MERCAPTOPURINE
     Dosage: 60 MILLIGRAM/ METER SQAURE
     Route: 048

REACTIONS (3)
  - Death [Fatal]
  - Acute lymphocytic leukaemia recurrent [Unknown]
  - Hypertriglyceridaemia [Unknown]
